FAERS Safety Report 19394488 (Version 1)
Quarter: 2021Q2

REPORT INFORMATION
  Report Type: Spontaneous
  Country: IT (occurrence: IT)
  Receive Date: 20210609
  Receipt Date: 20210609
  Transmission Date: 20210717
  Serious: Yes (Life-Threatening, Hospitalization)
  Sender: FDA-Public Use
  Company Number: IT-TEVA-2021-IT-1919814

PATIENT
  Age: 52 Year
  Sex: Female

DRUGS (3)
  1. BEVACIZUMAB. [Suspect]
     Active Substance: BEVACIZUMAB
     Indication: OVARIAN CANCER STAGE III
     Route: 065
     Dates: start: 2019
  2. CARBOPLATIN. [Suspect]
     Active Substance: CARBOPLATIN
     Indication: OVARIAN CANCER STAGE III
     Route: 065
     Dates: start: 2019
  3. TAXOL [Suspect]
     Active Substance: PACLITAXEL
     Indication: OVARIAN CANCER STAGE III
     Route: 065
     Dates: start: 2019

REACTIONS (8)
  - Malnutrition [Recovered/Resolved]
  - Ureteric compression [Recovered/Resolved]
  - Pelvic abscess [Recovered/Resolved]
  - Pyelocaliectasis [Recovered/Resolved]
  - Large intestine perforation [Recovered/Resolved]
  - Hydroureter [Recovered/Resolved]
  - Ureteric stenosis [Recovered/Resolved]
  - Short-bowel syndrome [Recovered/Resolved]
